FAERS Safety Report 17465110 (Version 5)
Quarter: 2020Q2

REPORT INFORMATION
  Report Type: Spontaneous
  Country: TH (occurrence: TH)
  Receive Date: 20200226
  Receipt Date: 20200427
  Transmission Date: 20200713
  Serious: Yes (Hospitalization)
  Sender: FDA-Public Use
  Company Number: TH-CELLTRION INC.-2020TH019588

PATIENT

DRUGS (45)
  1. TRUXIMA [Suspect]
     Active Substance: RITUXIMAB-ABBS
     Dosage: 600 MG IV Q 3 WK. (6 CYCLES)
     Route: 042
     Dates: start: 20191023, end: 20191023
  2. VINCRISTINE [Suspect]
     Active Substance: VINCRISTINE
     Dosage: 1 MG IV Q 3 WK
     Route: 042
     Dates: start: 20191223, end: 20191223
  3. DOXORUBICIN [Suspect]
     Active Substance: DOXORUBICIN
     Dosage: 60 MG IV Q 3 WK
     Route: 042
     Dates: start: 20191223, end: 20191223
  4. PREDNISOLONE. [Suspect]
     Active Substance: PREDNISOLONE
     Dosage: 7 TAB (5MG) PO TID
     Route: 048
     Dates: start: 20190930, end: 20190930
  5. VINCRISTINE [Suspect]
     Active Substance: VINCRISTINE
     Dosage: 1 MG IV Q 3 WK
     Route: 042
     Dates: start: 20191023, end: 20191023
  6. CYCLOPHOSPHAMIDE. [Suspect]
     Active Substance: CYCLOPHOSPHAMIDE
     Indication: DIFFUSE LARGE B-CELL LYMPHOMA
     Dosage: 1000 MG IV Q 3 WK
     Route: 042
     Dates: start: 20190930, end: 20190930
  7. FOLIC ACID. [Concomitant]
     Active Substance: FOLIC ACID
     Dosage: 1 TAB PO ONCE DAILY
     Route: 048
     Dates: start: 20200114
  8. TRUXIMA [Suspect]
     Active Substance: RITUXIMAB-ABBS
     Dosage: 600 MG IV Q 3 WK. (6 CYCLES)
     Route: 042
     Dates: start: 20191111, end: 20191111
  9. TRUXIMA [Suspect]
     Active Substance: RITUXIMAB-ABBS
     Dosage: 600 MG IV Q 3 WK. (6 CYCLES)
     Route: 042
     Dates: start: 20191202, end: 20191202
  10. TRUXIMA [Suspect]
     Active Substance: RITUXIMAB-ABBS
     Dosage: 600 MG IV Q 3 WK. (6 CYCLES)
     Route: 042
     Dates: start: 20191223, end: 20191223
  11. TRUXIMA [Suspect]
     Active Substance: RITUXIMAB-ABBS
     Dosage: 600 MG IV Q 3 WK. (6 CYCLES)
     Route: 042
     Dates: start: 20200113, end: 20200113
  12. DOXORUBICIN [Suspect]
     Active Substance: DOXORUBICIN
     Indication: DIFFUSE LARGE B-CELL LYMPHOMA
     Dosage: 60 MG IV Q 3 WK
     Route: 042
     Dates: start: 20190930, end: 20190930
  13. DOXORUBICIN [Suspect]
     Active Substance: DOXORUBICIN
     Dosage: 60 MG IV Q 3 WK
     Route: 042
     Dates: start: 20191111, end: 20191111
  14. PREDNISOLONE. [Suspect]
     Active Substance: PREDNISOLONE
     Dosage: 7 TAB (5MG) PO TID
     Route: 048
     Dates: start: 20191223, end: 20191223
  15. GABAPENTIN. [Concomitant]
     Active Substance: GABAPENTIN
     Dosage: 1 CAP PO (300MG) AT BEDTIME
     Route: 048
     Dates: start: 20200114
  16. TRUXIMA [Suspect]
     Active Substance: RITUXIMAB-ABBS
     Dosage: 600 MG IV Q 3 WK. (6 CYCLES)
     Route: 042
     Dates: start: 20191202, end: 20191202
  17. TRUXIMA [Suspect]
     Active Substance: RITUXIMAB-ABBS
     Dosage: 600 MG IV Q 3 WK. (6 CYCLES)
     Route: 042
     Dates: start: 20191223, end: 20191223
  18. VINCRISTINE [Suspect]
     Active Substance: VINCRISTINE
     Indication: DIFFUSE LARGE B-CELL LYMPHOMA
     Dosage: 1 MG IV Q 3 WK
     Route: 042
     Dates: start: 20190930, end: 20190930
  19. VINCRISTINE [Suspect]
     Active Substance: VINCRISTINE
     Dosage: 1 MG IV Q 3 WK
     Route: 042
     Dates: start: 20191111, end: 20191111
  20. CYCLOPHOSPHAMIDE. [Suspect]
     Active Substance: CYCLOPHOSPHAMIDE
     Dosage: 1000 MG IV Q 3 WK
     Route: 042
     Dates: start: 20191202, end: 20191202
  21. TRAZODONE [Concomitant]
     Active Substance: TRAZODONE HYDROCHLORIDE
     Dosage: 1 TAB PO AT BEDTIME
     Route: 048
     Dates: start: 20200113
  22. GABAPENTIN. [Concomitant]
     Active Substance: GABAPENTIN
     Dosage: 1 CAP (100MG) PO ONCE DAILY
     Route: 048
     Dates: start: 20200114
  23. VINCRISTINE [Suspect]
     Active Substance: VINCRISTINE
     Dosage: 1 MG IV Q 3 WK
     Route: 042
     Dates: start: 20200113, end: 20200113
  24. DOXORUBICIN [Suspect]
     Active Substance: DOXORUBICIN
     Dosage: 60 MG IV Q 3 WK
     Route: 042
     Dates: start: 20191202, end: 20191202
  25. CYCLOPHOSPHAMIDE. [Suspect]
     Active Substance: CYCLOPHOSPHAMIDE
     Dosage: 1000 MG IV Q 3 WK
     Route: 042
     Dates: start: 20191023, end: 20191023
  26. CYCLOPHOSPHAMIDE. [Suspect]
     Active Substance: CYCLOPHOSPHAMIDE
     Dosage: 1000 MG IV Q 3 WK
     Route: 042
     Dates: start: 20191111, end: 20191111
  27. PREDNISOLONE. [Suspect]
     Active Substance: PREDNISOLONE
     Dosage: 7 TAB (5MG) PO TID
     Route: 048
     Dates: start: 20191202, end: 20191202
  28. PREDNISOLONE. [Suspect]
     Active Substance: PREDNISOLONE
     Dosage: 7 TAB (5MG) PO TID
     Route: 048
     Dates: start: 20200113, end: 20200113
  29. ZOLPIDEM [Concomitant]
     Active Substance: ZOLPIDEM TARTRATE
     Dosage: 1 TAB PO AT BEDTIME
     Route: 048
     Dates: start: 20200113
  30. VITAMIN B COMPLEX [Concomitant]
     Active Substance: CYANOCOBALAMIN\DEXPANTHENOL\NIACINAMIDE\PYRIDOXINE HYDROCHLORIDE\RIBOFLAVIN 5^-PHOSPHATE SODIUM\THIAMINE HYDROCHLORIDE\VITAMIN B COMPLEX
     Dosage: 1 TAB PO TID
     Route: 048
     Dates: start: 20200114
  31. TRUXIMA [Suspect]
     Active Substance: RITUXIMAB-ABBS
     Indication: DIFFUSE LARGE B-CELL LYMPHOMA
     Dosage: 600 MG IV Q 3 WK. (6 CYCLES)
     Route: 042
     Dates: start: 20190930, end: 20190930
  32. TRUXIMA [Suspect]
     Active Substance: RITUXIMAB-ABBS
     Dosage: 600 MG IV Q 3 WK. (6 CYCLES)
     Route: 042
     Dates: start: 20190930, end: 20190930
  33. TRUXIMA [Suspect]
     Active Substance: RITUXIMAB-ABBS
     Dosage: 600 MG IV Q 3 WK. (6 CYCLES)
     Route: 042
     Dates: start: 20191023, end: 20191023
  34. TRUXIMA [Suspect]
     Active Substance: RITUXIMAB-ABBS
     Dosage: 600 MG IV Q 3 WK. (6 CYCLES)
     Route: 042
     Dates: start: 20200113, end: 20200113
  35. DOXORUBICIN [Suspect]
     Active Substance: DOXORUBICIN
     Dosage: 60 MG IV Q 3 WK
     Route: 042
     Dates: start: 20191023, end: 20191023
  36. DOXORUBICIN [Suspect]
     Active Substance: DOXORUBICIN
     Dosage: 60 MG IV Q 3 WK
     Route: 042
     Dates: start: 20200113, end: 20200113
  37. CYCLOPHOSPHAMIDE. [Suspect]
     Active Substance: CYCLOPHOSPHAMIDE
     Dosage: 1000 MG IV Q 3 WK
     Route: 042
     Dates: start: 20191223, end: 20191223
  38. PREDNISOLONE. [Suspect]
     Active Substance: PREDNISOLONE
     Dosage: 7 TAB (5MG) PO TID
     Route: 048
     Dates: start: 20191023, end: 20191023
  39. TRUXIMA [Suspect]
     Active Substance: RITUXIMAB-ABBS
     Dosage: 600 MG IV Q 3 WK. (6 CYCLES)
     Route: 042
     Dates: start: 20191111, end: 20191111
  40. VINCRISTINE [Suspect]
     Active Substance: VINCRISTINE
     Dosage: 1 MG IV Q 3 WK
     Route: 042
     Dates: start: 20191202, end: 20191202
  41. CYCLOPHOSPHAMIDE. [Suspect]
     Active Substance: CYCLOPHOSPHAMIDE
     Dosage: 1000 MG IV Q 3 WK
     Route: 042
     Dates: start: 20200113, end: 20200113
  42. PARACETAMOL + TRAMADOL [Concomitant]
     Active Substance: ACETAMINOPHEN\TRAMADOL
     Dosage: 1 TAB PO PRN
     Route: 048
     Dates: start: 20200113
  43. RIVAROXABAN [Concomitant]
     Active Substance: RIVAROXABAN
     Dosage: 1 TAB PO (10MG) ONCE DAILY
     Route: 048
     Dates: start: 20200114
  44. PREDNISOLONE. [Suspect]
     Active Substance: PREDNISOLONE
     Indication: DIFFUSE LARGE B-CELL LYMPHOMA
     Dosage: 7 TAB (5MG) PO TID
     Route: 048
     Dates: start: 20200114, end: 20200120
  45. PREDNISOLONE. [Suspect]
     Active Substance: PREDNISOLONE
     Dosage: 7 TAB (5MG) PO TID
     Route: 048
     Dates: start: 20191111, end: 20191111

REACTIONS (10)
  - Pleural effusion [Recovered/Resolved]
  - Cough [Recovered/Resolved]
  - Overdose [Unknown]
  - Lung infiltration [Recovered/Resolved]
  - Diarrhoea [Recovered/Resolved]
  - Hypotension [Recovered/Resolved]
  - Rales [Recovered/Resolved]
  - Pyrexia [Recovered/Resolved]
  - Dyspnoea [Recovered/Resolved]
  - Lung opacity [Recovered/Resolved]

NARRATIVE: CASE EVENT DATE: 20200126
